FAERS Safety Report 20288714 (Version 1)
Quarter: 2022Q1

REPORT INFORMATION
  Report Type: Spontaneous
  Country: DE (occurrence: DE)
  Receive Date: 20220104
  Receipt Date: 20220104
  Transmission Date: 20220423
  Serious: Yes (Life-Threatening, Hospitalization)
  Sender: FDA-Public Use
  Company Number: DE-TAKEDA-2021TUS079465

PATIENT
  Sex: Male

DRUGS (5)
  1. ALBUMIN HUMAN [Suspect]
     Active Substance: ALBUMIN HUMAN
     Indication: Surgery
     Dosage: 20
     Route: 042
     Dates: start: 20211211, end: 20211211
  2. SUFENTANIL [Concomitant]
     Active Substance: SUFENTANIL
  3. PROPOFOL [Concomitant]
     Active Substance: PROPOFOL
  4. ESKETAMINA [Concomitant]
  5. SEVOFLURANE [Concomitant]
     Active Substance: SEVOFLURANE

REACTIONS (2)
  - Erythema [Recovered/Resolved]
  - Blood pressure decreased [Recovered/Resolved]

NARRATIVE: CASE EVENT DATE: 20211211
